FAERS Safety Report 19846934 (Version 3)
Quarter: 2021Q4

REPORT INFORMATION
  Report Type: Report from Study
  Country: US (occurrence: US)
  Receive Date: 20210917
  Receipt Date: 20211007
  Transmission Date: 20220303
  Serious: Yes (Other)
  Sender: FDA-Public Use
  Company Number: US-HBP-2021US022862

PATIENT
  Age: 74 Year
  Sex: Female

DRUGS (1)
  1. VALCHLOR [Suspect]
     Active Substance: MECHLORETHAMINE
     Indication: Cutaneous T-cell lymphoma
     Dosage: THIN FILM, QD
     Route: 061
     Dates: start: 202107

REACTIONS (10)
  - Malignant neoplasm progression [Not Recovered/Not Resolved]
  - Cutaneous T-cell lymphoma [Not Recovered/Not Resolved]
  - Application site discharge [Not Recovered/Not Resolved]
  - Application site fissure [Not Recovered/Not Resolved]
  - Skin discolouration [Not Recovered/Not Resolved]
  - Application site pain [Not Recovered/Not Resolved]
  - Application site laceration [Not Recovered/Not Resolved]
  - Condition aggravated [Unknown]
  - Pain of skin [Unknown]
  - Erythema [Unknown]

NARRATIVE: CASE EVENT DATE: 20210801
